FAERS Safety Report 9946731 (Version 1)
Quarter: 2014Q1

REPORT INFORMATION
  Report Type: Report from Study
  Country: US (occurrence: US)
  Receive Date: 20140303
  Receipt Date: 20140303
  Transmission Date: 20141002
  Serious: No
  Sender: FDA-Public Use
  Company Number: US-ABBVIE-13P-163-1063619-00

PATIENT
  Age: 47 Year
  Sex: Female

DRUGS (6)
  1. HUMIRA [Suspect]
     Indication: RHEUMATOID ARTHRITIS
  2. LEVOTHYROXINE [Concomitant]
     Indication: HYPOTHYROIDISM
  3. CITALOPRAM [Concomitant]
     Indication: ANXIETY
  4. SULINDAC [Concomitant]
     Indication: ANTIINFLAMMATORY THERAPY
  5. DICYCLOMINE [Concomitant]
     Indication: IRRITABLE BOWEL SYNDROME
  6. EST ESTRGN METHTEST [Concomitant]
     Indication: HORMONE THERAPY
     Dosage: 1.25/2.5 MG DAILY

REACTIONS (5)
  - Ear discomfort [Not Recovered/Not Resolved]
  - Nasal congestion [Recovered/Resolved]
  - Dizziness [Not Recovered/Not Resolved]
  - Nausea [Not Recovered/Not Resolved]
  - Dizziness [Not Recovered/Not Resolved]
